FAERS Safety Report 8807963 (Version 7)
Quarter: 2012Q4

REPORT INFORMATION
  Report Type: Report from Study
  Country: JP (occurrence: JP)
  Receive Date: 20120925
  Receipt Date: 20121129
  Transmission Date: 20130627
  Serious: Yes (Death)
  Sender: FDA-Public Use
  Company Number: JP-VERTEX PHARMACEUTICAL INC.-2012-021632

PATIENT
  Age: 69 Year
  Sex: Male

DRUGS (13)
  1. VX-950 (TELAPREVIR) [Suspect]
     Indication: CHRONIC HEPATITIS C
     Dosage: 1500 mg, qd
     Route: 048
     Dates: start: 20120707, end: 20120831
  2. VX-950 (TELAPREVIR) [Suspect]
     Dosage: 1000 mg, qd
     Route: 048
     Dates: start: 20120901, end: 20120907
  3. PEGINTRON                          /01543001/ [Suspect]
     Indication: CHRONIC HEPATITIS C
     Dosage: 1.4 ?g/kg, qw
     Route: 058
     Dates: start: 20120707, end: 20120917
  4. PEGINTRON                          /01543001/ [Suspect]
     Dosage: UNK
  5. REBETOL [Suspect]
     Indication: CHRONIC HEPATITIS C
     Dosage: 800 mg, qd
     Route: 048
     Dates: start: 20120707, end: 20120916
  6. URSO                               /00465701/ [Concomitant]
     Dosage: 600 mg, qd
     Route: 048
     Dates: end: 20120720
  7. PROHEPARUM [Concomitant]
     Dosage: 3 DF, qd
     Route: 048
     Dates: end: 20120720
  8. MINOFIT [Concomitant]
     Dosage: 80 ml, qd
     Route: 042
     Dates: end: 20120730
  9. PREMINENT [Concomitant]
     Dosage: 1 DF, qd
     Route: 048
     Dates: end: 20120916
  10. ALLELOCK [Concomitant]
     Dosage: 10 mg, qd
     Route: 048
     Dates: end: 20120727
  11. MYSLEE [Concomitant]
     Dosage: 5 mg, qd
     Route: 048
     Dates: start: 20120707, end: 20120708
  12. RIZE                               /00624801/ [Concomitant]
     Dosage: 5 mg, qd
     Route: 048
     Dates: start: 20120709, end: 20120727
  13. MICOMBI COMBINATION [Concomitant]
     Dosage: 1 DF, qd
     Route: 048
     Dates: start: 20120914, end: 20120916

REACTIONS (2)
  - Toxic epidermal necrolysis [Fatal]
  - Septic shock [Fatal]
